FAERS Safety Report 15235466 (Version 2)
Quarter: 2020Q1

REPORT INFORMATION
  Report Type: Report from Study
  Country: US (occurrence: US)
  Receive Date: 20180803
  Receipt Date: 20200107
  Transmission Date: 20200409
  Serious: Yes (Hospitalization, Other)
  Sender: FDA-Public Use
  Company Number: US-ROCHE-2163148

PATIENT
  Sex: Male

DRUGS (1)
  1. OCREVUS [Suspect]
     Active Substance: OCRELIZUMAB
     Indication: PRIMARY PROGRESSIVE MULTIPLE SCLEROSIS
     Dosage: 1ST HALF DOSE,DATE OF TREATMENT: 29/OCT/2018, 07/NOV/2019, 30/APR/2018 AND 29/APR/2019
     Route: 065
     Dates: start: 20170919

REACTIONS (4)
  - Intentional product use issue [Unknown]
  - Off label use [Unknown]
  - Infection [Recovered/Resolved]
  - Thrombosis [Unknown]
